FAERS Safety Report 16698601 (Version 1)
Quarter: 2019Q3

REPORT INFORMATION
  Report Type: Spontaneous
  Country: US (occurrence: US)
  Receive Date: 20190627
  Receipt Date: 20190627
  Transmission Date: 20191004
  Serious: Yes (Hospitalization)
  Sender: FDA-Public Use
  Company Number: None

PATIENT
  Age: 37 Year
  Sex: Female
  Weight: 53.07 kg

DRUGS (13)
  1. FUROSEMIDE. [Concomitant]
     Active Substance: FUROSEMIDE
  2. FAMOTIDINE. [Concomitant]
     Active Substance: FAMOTIDINE
  3. OXYCODONE [Concomitant]
     Active Substance: OXYCODONE
  4. FLAGYL [Concomitant]
     Active Substance: METRONIDAZOLE\METRONIDAZOLE HYDROCHLORIDE
  5. GABAPENTIN. [Concomitant]
     Active Substance: GABAPENTIN
  6. ENOXAPARIN [Concomitant]
     Active Substance: ENOXAPARIN
  7. ZARXIO [Suspect]
     Active Substance: FILGRASTIM-SNDZ
     Indication: NEOPLASM MALIGNANT
     Dosage: ?          OTHER STRENGTH:300MCG/0.5ML;?
     Route: 058
  8. LORAZEPAM. [Concomitant]
     Active Substance: LORAZEPAM
  9. METHYLPREDNISOLONE. [Concomitant]
     Active Substance: METHYLPREDNISOLONE
  10. QUETIAPINE. [Concomitant]
     Active Substance: QUETIAPINE
  11. MIRALAX [Concomitant]
     Active Substance: POLYETHYLENE GLYCOL 3350
  12. MORPHINE [Concomitant]
     Active Substance: MORPHINE
  13. ATROVENT [Concomitant]
     Active Substance: IPRATROPIUM BROMIDE

REACTIONS (1)
  - Hospitalisation [None]
